FAERS Safety Report 6990069-2 (Version None)
Quarter: 2010Q3

REPORT INFORMATION
  Report Type: 
  Country: None (occurrence: None)
  Receive Date: 20100916
  Receipt Date: 20100416
  Transmission Date: 20110219
  Serious: Yes (Other)
  Sender: FDA-Public Use
  Company Number: US-PFIZER INC-2010049218

PATIENT
  Sex: Female
  Weight: 66.213 kg

DRUGS (9)
  1. NEURONTIN [Suspect]
     Indication: POST HERPETIC NEURALGIA
     Dosage: UNK
     Route: 048
     Dates: start: 20090701, end: 20090701
  2. LYRICA [Suspect]
     Indication: MIGRAINE
     Dosage: 50 MG, DAILY
     Route: 048
     Dates: start: 20090801
  3. CYMBALTA [Concomitant]
     Indication: DEPRESSION
     Dosage: UNK
  4. LAMOTRIGINE [Concomitant]
     Indication: DEPRESSION
     Dosage: UNK
  5. OXYCODONE [Concomitant]
     Indication: BACK PAIN
     Dosage: UNK
  6. HYDROCODONE [Concomitant]
     Indication: BACK PAIN
     Dosage: UNK
  7. XANAX [Concomitant]
     Indication: PANIC ATTACK
     Dosage: UNK
  8. XANAX [Concomitant]
     Indication: SLEEP DISORDER
  9. AMBIEN [Concomitant]
     Indication: SLEEP DISORDER
     Dosage: UNK

REACTIONS (4)
  - BLOOD GLUCOSE INCREASED [None]
  - DEPRESSION SUICIDAL [None]
  - FEELING DRUNK [None]
  - MOOD ALTERED [None]
